FAERS Safety Report 21736834 (Version 2)
Quarter: 2022Q4

REPORT INFORMATION
  Report Type: Other
  Country: US (occurrence: US)
  Receive Date: 20221216
  Receipt Date: 20221227
  Transmission Date: 20230113
  Serious: Yes (Hospitalization)
  Sender: FDA-Public Use
  Company Number: US-ALVOGEN-2022088803

PATIENT
  Age: 54 Year
  Sex: Male

DRUGS (3)
  1. METHOTREXATE [Suspect]
     Active Substance: METHOTREXATE
     Indication: Systemic scleroderma
  2. METHOTREXATE [Suspect]
     Active Substance: METHOTREXATE
     Indication: Systemic scleroderma
     Dosage: DOSE WAS TITRATED UNTIL HE REACHED A DOSE OF 20 MG PER WEEK. DOSE WAS INTERRUPTED FOR 14 DAYS
  3. UNSPECIFIED INGREDIENT [Suspect]
     Active Substance: UNSPECIFIED INGREDIENT
     Indication: Pain

REACTIONS (8)
  - Cardiotoxicity [Recovering/Resolving]
  - Cardiac failure [Recovering/Resolving]
  - Renal impairment [Recovering/Resolving]
  - Cardiomyopathy [Recovering/Resolving]
  - Off label use [Unknown]
  - Intentional dose omission [Unknown]
  - Hypertensive end-organ damage [Recovering/Resolving]
  - Myocardial necrosis [Recovering/Resolving]
